FAERS Safety Report 5987705-6 (Version None)
Quarter: 2008Q4

REPORT INFORMATION
  Report Type: 
  Country: None (occurrence: None)
  Receive Date: 20081209
  Receipt Date: 20081203
  Transmission Date: 20090506
  Serious: Yes (Death, Hospitalization, Other)
  Sender: FDA-Public Use
  Company Number: US-ROXANE LABORATORIES, INC.-2008-RO-00328RO

PATIENT
  Sex: Female

DRUGS (8)
  1. METHADONE HCL [Suspect]
     Indication: PAIN
     Dosage: 180MG
     Route: 048
  2. METHADONE HCL [Suspect]
     Route: 048
  3. METHADONE HCL [Suspect]
     Dosage: 270MG
     Route: 048
  4. METHADONE HCL [Suspect]
     Route: 048
  5. METHADONE HCL [Suspect]
     Dosage: 120MG
     Route: 048
  6. FENTANYL-100 [Suspect]
     Indication: PAIN
     Route: 062
  7. OXYCODONE HCL [Suspect]
     Indication: PAIN
     Dosage: 40MG
  8. IBUPROFEN TABLETS [Suspect]
     Indication: PAIN

REACTIONS (4)
  - CONVULSION [None]
  - DEATH [None]
  - DRUG INEFFECTIVE [None]
  - LOSS OF CONSCIOUSNESS [None]
